FAERS Safety Report 14085185 (Version 1)
Quarter: 2017Q4

REPORT INFORMATION
  Report Type: Spontaneous
  Country: FR (occurrence: FR)
  Receive Date: 20171013
  Receipt Date: 20171013
  Transmission Date: 20180321
  Serious: Yes (Hospitalization)
  Sender: FDA-Public Use
  Company Number: FR-ACCORD-059957

PATIENT
  Age: 64 Year
  Sex: Male

DRUGS (7)
  1. RAMIPRIL. [Concomitant]
     Active Substance: RAMIPRIL
     Dosage: MORNING AND EVENING
  2. FLUOROURACIL ACCORD [Suspect]
     Active Substance: FLUOROURACIL
     Indication: SQUAMOUS CELL CARCINOMA
     Dosage: STRENGTH: 50 MG/ML
     Route: 042
     Dates: start: 2017, end: 20170515
  3. FLAGYL [Concomitant]
     Active Substance: METRONIDAZOLE\METRONIDAZOLE HYDROCHLORIDE
     Dosage: 6 TO 8 TIMES DAILY
  4. PARAFFIN [Concomitant]
     Active Substance: PARAFFIN
     Dosage: THREE APPLICATIONS DAILY
  5. CARBOPLATIN KABI [Interacting]
     Active Substance: CARBOPLATIN
     Indication: SQUAMOUS CELL CARCINOMA
     Dosage: STRENGTH: 10 MG/ML
     Route: 042
     Dates: start: 2017, end: 20170515
  6. KARDEGIC [Concomitant]
     Active Substance: ASPIRIN DL-LYSINE
     Dosage: ONCE AT NOON
  7. CICAPLAST [Concomitant]
     Dosage: ONE APPLICATION DAILY

REACTIONS (2)
  - Sepsis [Recovered/Resolved]
  - Drug interaction [Unknown]

NARRATIVE: CASE EVENT DATE: 20170526
